FAERS Safety Report 5374461-8 (Version None)
Quarter: 2007Q2

REPORT INFORMATION
  Report Type: 
  Country: None (occurrence: None)
  Receive Date: 20070629
  Receipt Date: 20070625
  Transmission Date: 20071010
  Serious: Yes (Death, Hospitalization)
  Sender: FDA-Public Use
  Company Number: JP-ELI_LILLY_AND_COMPANY-JP200706005581

PATIENT
  Age: 66 Year
  Sex: Male
  Weight: 40 kg

DRUGS (7)
  1. GEMZAR [Suspect]
     Indication: BILE DUCT CANCER STAGE IV
     Dosage: 1400 MG, OTHER
     Route: 042
     Dates: start: 20060721, end: 20060811
  2. MORPHINE SULFATE [Concomitant]
     Indication: CANCER PAIN
     Dosage: 20 MG, DAILY (1/D)
     Route: 048
     Dates: start: 20060719, end: 20060724
  3. MORPHINE SULFATE [Concomitant]
     Dosage: 30 MG, DAILY (1/D)
     Route: 048
     Dates: start: 20060725
  4. LOXONIN [Concomitant]
     Indication: PAIN
     Dosage: UNK, AS NEEDED
     Route: 048
     Dates: start: 20060606
  5. SELBEX [Concomitant]
     Indication: PROPHYLAXIS
     Dosage: 150 MG, DAILY (1/D)
     Route: 048
     Dates: start: 20060223
  6. BIOFERMIN [Concomitant]
     Indication: CONSTIPATION
     Dosage: 3 G, DAILY (1/D)
     Route: 048
     Dates: start: 20060223
  7. LOPEMIN [Concomitant]
     Indication: DIARRHOEA
     Dosage: 2 MG, DAILY (1/D)
     Route: 048
     Dates: start: 20060414

REACTIONS (3)
  - CHOLANGITIS [None]
  - MALIGNANT NEOPLASM PROGRESSION [None]
  - PYREXIA [None]
